FAERS Safety Report 16313480 (Version 3)
Quarter: 2019Q2

REPORT INFORMATION
  Report Type: Report from Study
  Country: None (occurrence: TR)
  Receive Date: 20190515
  Receipt Date: 20190616
  Transmission Date: 20190711
  Serious: Yes (Death)
  Sender: FDA-Public Use
  Company Number: TR-ABBVIE-19S-161-2783700-00

PATIENT
  Age: 77 Year
  Sex: Female
  Weight: 52 kg

DRUGS (2)
  1. DUODOPA [Suspect]
     Active Substance: CARBIDOPA\LEVODOPA
     Indication: PARKINSON^S DISEASE
     Dosage: MORNING DOSE (ML): 5,00?CONTINUOUS DOSE (ML): 1,70?EXTRA DOSE (ML): 0,60
     Route: 050
     Dates: start: 20190507
  2. MOTILIUM [Concomitant]
     Active Substance: DOMPERIDONE
     Indication: GASTROINTESTINAL DISORDER
     Route: 048
     Dates: start: 20190506

REACTIONS (1)
  - Death [Fatal]

NARRATIVE: CASE EVENT DATE: 20190512
